FAERS Safety Report 23065183 (Version 1)
Quarter: 2023Q4

REPORT INFORMATION
  Report Type: Spontaneous
  Country: US (occurrence: US)
  Receive Date: 20231013
  Receipt Date: 20231013
  Transmission Date: 20240110
  Serious: No
  Sender: FDA-Public Use
  Company Number: US-BRISTOL-MYERS SQUIBB COMPANY-2023-145805

PATIENT
  Age: 72 Year
  Sex: Male
  Weight: 86.18 kg

DRUGS (5)
  1. ELIQUIS [Suspect]
     Active Substance: APIXABAN
     Indication: Atrial fibrillation
     Route: 048
     Dates: start: 20230705
  2. METOPROLOL [Concomitant]
     Active Substance: METOPROLOL
     Indication: Product used for unknown indication
  3. AMLODIPINE [Concomitant]
     Active Substance: AMLODIPINE BESYLATE
     Indication: Product used for unknown indication
  4. VITAMIN C [Concomitant]
     Active Substance: ASCORBIC ACID
     Indication: Product used for unknown indication
  5. CRANBERRY [Concomitant]
     Active Substance: CRANBERRY
     Indication: Prostatic disorder

REACTIONS (5)
  - Abdominal discomfort [Unknown]
  - Fatigue [Unknown]
  - Heart rate abnormal [Unknown]
  - Product dose omission issue [Unknown]
  - Food interaction [Unknown]
